FAERS Safety Report 23309435 (Version 1)
Quarter: 2023Q4

REPORT INFORMATION
  Report Type: Spontaneous
  Country: US (occurrence: US)
  Receive Date: 20231218
  Receipt Date: 20231218
  Transmission Date: 20240110
  Serious: No
  Sender: FDA-Public Use
  Company Number: US-AMGEN-USASP2023222030

PATIENT
  Age: 82 Year
  Sex: Male

DRUGS (2)
  1. REPATHA [Suspect]
     Active Substance: EVOLOCUMAB
     Indication: Blood triglycerides increased
     Dosage: 420 MILLIGRAM, QMO
     Route: 065
     Dates: start: 20231017
  2. REPATHA [Suspect]
     Active Substance: EVOLOCUMAB
     Indication: Blood cholesterol abnormal

REACTIONS (6)
  - Illness [Recovering/Resolving]
  - Dysphonia [Recovering/Resolving]
  - Gastrooesophageal reflux disease [Recovering/Resolving]
  - Oropharyngeal pain [Recovering/Resolving]
  - Cough [Recovering/Resolving]
  - Sinusitis [Recovering/Resolving]

NARRATIVE: CASE EVENT DATE: 20231128
